FAERS Safety Report 4678763-X (Version None)
Quarter: 2005Q2

REPORT INFORMATION
  Report Type: 
  Country: None (occurrence: None)
  Receive Date: 20050531
  Receipt Date: 20050525
  Transmission Date: 20051028
  Serious: Yes (Death, Other)
  Sender: FDA-Public Use
  Company Number: USA-2005-0020370

PATIENT
  Age: 38 Year
  Sex: Male

DRUGS (3)
  1. OXYCODONE HCL [Suspect]
  2. MORPHINE SULFATE [Suspect]
  3. SERTRALINE(SERTRALINE) [Suspect]
     Indication: MENTAL DISORDER

REACTIONS (3)
  - MULTIPLE DRUG OVERDOSE [None]
  - POLYSUBSTANCE ABUSE [None]
  - PULMONARY CONGESTION [None]
